FAERS Safety Report 6808128-3 (Version None)
Quarter: 2010Q2

REPORT INFORMATION
  Report Type: 
  Country: None (occurrence: None)
  Receive Date: 20100629
  Receipt Date: 20090316
  Transmission Date: 20101027
  Serious: No
  Sender: FDA-Public Use
  Company Number: US-PFIZER INC-2009173039

PATIENT
  Sex: Female
  Weight: 79.4 kg

DRUGS (1)
  1. ZYVOX [Suspect]
     Indication: POST PROCEDURAL INFECTION
     Dosage: 600 MG, 2X/DAY
     Dates: start: 20090201

REACTIONS (2)
  - ORAL PAIN [None]
  - TONGUE DISORDER [None]
